FAERS Safety Report 10861432 (Version 1)
Quarter: 2015Q1

REPORT INFORMATION
  Report Type: Spontaneous
  Country: GB (occurrence: GB)
  Receive Date: 20150224
  Receipt Date: 20150224
  Transmission Date: 20150721
  Serious: Yes (Death, Other)
  Sender: FDA-Public Use
  Company Number: GB-CIPLA LTD.-2015GB01314

PATIENT
  Age: 58 Year
  Sex: Male

DRUGS (1)
  1. GEMCITABINE [Suspect]
     Active Substance: GEMCITABINE\GEMCITABINE HYDROCHLORIDE
     Indication: SQUAMOUS CELL CARCINOMA
     Dosage: 1000 MG/M2, WEEKLY

REACTIONS (4)
  - Metastases to central nervous system [Fatal]
  - Disease progression [Unknown]
  - Recall phenomenon [Unknown]
  - Muscle necrosis [Unknown]
